FAERS Safety Report 19520975 (Version 3)
Quarter: 2022Q1

REPORT INFORMATION
  Report Type: Report from Study
  Country: US (occurrence: US)
  Receive Date: 20210712
  Receipt Date: 20220112
  Transmission Date: 20220424
  Serious: Yes (Hospitalization)
  Sender: FDA-Public Use
  Company Number: US-SANOFI-00396230

PATIENT
  Age: 20 Year
  Sex: Female
  Weight: 57.15 kg

DRUGS (3)
  1. DUPILUMAB [Suspect]
     Active Substance: DUPILUMAB
     Indication: Dermatitis atopic
     Dosage: 600 MG, 1X
     Route: 058
     Dates: start: 20200601, end: 20200601
  2. DUPILUMAB [Suspect]
     Active Substance: DUPILUMAB
     Dosage: 300 MG, QOW
     Route: 058
     Dates: start: 20200615
  3. COVID-19 VACCINE [Concomitant]
     Dosage: UNK

REACTIONS (12)
  - Malaise [Recovered/Resolved]
  - Dry skin [Not Recovered/Not Resolved]
  - Pruritus [Not Recovered/Not Resolved]
  - Skin laceration [Not Recovered/Not Resolved]
  - Weight increased [Unknown]
  - Rash [Not Recovered/Not Resolved]
  - Nasopharyngitis [Recovered/Resolved]
  - Illness [Recovered/Resolved]
  - Hypersensitivity [Recovered/Resolved]
  - Therapy interrupted [Unknown]
  - Therapy cessation [Unknown]
  - Product use issue [Unknown]

NARRATIVE: CASE EVENT DATE: 20201125
